FAERS Safety Report 5196147-5 (Version None)
Quarter: 2006Q4

REPORT INFORMATION
  Report Type: 
  Country: None (occurrence: None)
  Receive Date: 20061220
  Receipt Date: 20061204
  Transmission Date: 20070319
  Serious: Yes (Death)
  Sender: FDA-Public Use
  Company Number: PHO-2006-041

PATIENT
  Sex: 0

DRUGS (1)
  1. PHOTOFRIN [Suspect]
     Indication: BRAIN NEOPLASM
     Dosage: 2MG/KG INTRAVENOUS; 1 ADMINISTRATION
     Route: 042

REACTIONS (2)
  - CEREBRAL HAEMORRHAGE [None]
  - TUMOUR HAEMORRHAGE [None]
